FAERS Safety Report 10347129 (Version 2)
Quarter: 2014Q3

REPORT INFORMATION
  Report Type: Report from Study
  Country: US (occurrence: US)
  Receive Date: 20140729
  Receipt Date: 20140729
  Transmission Date: 20150326
  Serious: Yes (Life-Threatening, Other)
  Sender: FDA-Public Use
  Company Number: US-ROCHE-1438950

PATIENT
  Age: 20 Year
  Sex: Male
  Weight: 167 kg

DRUGS (7)
  1. RITALIN LA [Concomitant]
     Active Substance: METHYLPHENIDATE HYDROCHLORIDE
     Indication: MULTIPLE SCLEROSIS
  2. VALIUM [Suspect]
     Active Substance: DIAZEPAM
     Indication: GENERALISED TONIC-CLONIC SEIZURE
  3. RITALIN LA [Concomitant]
     Active Substance: METHYLPHENIDATE HYDROCHLORIDE
     Indication: DISTURBANCE IN ATTENTION
  4. DOXYCYCLINE. [Concomitant]
     Active Substance: DOXYCYCLINE
  5. RITALIN LA [Concomitant]
     Active Substance: METHYLPHENIDATE HYDROCHLORIDE
     Indication: FATIGUE
  6. VALIUM [Suspect]
     Active Substance: DIAZEPAM
     Indication: MUSCLE SPASMS
     Dosage: AS NEEDED
     Route: 065
     Dates: start: 19740701, end: 19750815
  7. RITALIN LA [Concomitant]
     Active Substance: METHYLPHENIDATE HYDROCHLORIDE
     Indication: ABNORMAL LOSS OF WEIGHT

REACTIONS (3)
  - Dissociation [Recovered/Resolved]
  - Drug ineffective [Unknown]
  - Suicide attempt [Unknown]

NARRATIVE: CASE EVENT DATE: 19740701
